FAERS Safety Report 9894073 (Version 1)
Quarter: 2014Q1

REPORT INFORMATION
  Report Type: Spontaneous
  Country: US (occurrence: US)
  Receive Date: 20140213
  Receipt Date: 20140213
  Transmission Date: 20141002
  Serious: Yes (Hospitalization)
  Sender: FDA-Public Use
  Company Number: PHHY2014US014800

PATIENT
  Age: 63 Year
  Sex: Male

DRUGS (1)
  1. AMIODARONE [Suspect]

REACTIONS (11)
  - Rales [Recovering/Resolving]
  - Lung infiltration [Recovering/Resolving]
  - Pulmonary function test decreased [Recovering/Resolving]
  - Organising pneumonia [Recovering/Resolving]
  - Diffuse alveolar damage [Recovering/Resolving]
  - Dyspnoea exertional [Recovering/Resolving]
  - Dyspnoea [Recovering/Resolving]
  - Oedema [Recovering/Resolving]
  - Expiratory reserve volume abnormal [Recovering/Resolving]
  - Obstructive airways disorder [Recovering/Resolving]
  - Pulmonary toxicity [Recovering/Resolving]
